FAERS Safety Report 23070266 (Version 2)
Quarter: 2023Q4

REPORT INFORMATION
  Report Type: Spontaneous
  Country: US (occurrence: US)
  Receive Date: 20231016
  Receipt Date: 20231020
  Transmission Date: 20240110
  Serious: No
  Sender: FDA-Public Use
  Company Number: US-TAKEDA-2023TUS099361

PATIENT
  Age: 11 Year
  Weight: 41 kg

DRUGS (3)
  1. ADDERALL XR [Suspect]
     Active Substance: AMPHETAMINE ASPARTATE\AMPHETAMINE SULFATE\DEXTROAMPHETAMINE SACCHARATE\DEXTROAMPHETAMINE SULFATE
     Indication: Product used for unknown indication
     Dosage: 50 MILLIGRAM, QD
     Route: 065
  2. DYANAVEL XR [Concomitant]
     Active Substance: AMPHETAMINE
  3. GUANFACINE [Concomitant]
     Active Substance: GUANFACINE
     Indication: Tic
     Dosage: 1 MILLIGRAM
     Route: 065

REACTIONS (2)
  - Arthropod bite [Unknown]
  - Treatment failure [Unknown]
